FAERS Safety Report 6084126-5 (Version None)
Quarter: 2009Q1

REPORT INFORMATION
  Report Type: 
  Country: None (occurrence: None)
  Receive Date: 20090204
  Receipt Date: 20081008
  Transmission Date: 20090719
  Serious: No
  Sender: FDA-Public Use
  Company Number: 278183

PATIENT
  Age: 39 Year
  Sex: Male
  Weight: 102 kg

DRUGS (3)
  1. NOVOLOG [Suspect]
     Indication: BLOOD GLUCOSE INCREASED
     Dosage: SUBCUTANEOUS
     Route: 058
     Dates: start: 20071201
  2. TOPROL-XL [Concomitant]
  3. FENOFIBRATE [Concomitant]

REACTIONS (1)
  - BLOOD GLUCOSE INCREASED [None]
